FAERS Safety Report 6403587-2 (Version None)
Quarter: 2009Q4

REPORT INFORMATION
  Report Type: 
  Country: None (occurrence: None)
  Receive Date: 20091013
  Receipt Date: 20091008
  Transmission Date: 20100525
  Serious: Yes (Hospitalization)
  Sender: FDA-Public Use
  Company Number: 09GB004243

PATIENT
  Age: 32 Year
  Sex: Female

DRUGS (13)
  1. IBUPROFEN [Suspect]
     Indication: ARTHRALGIA
     Dosage: 400 MG,
  2. IBUPROFEN [Suspect]
     Indication: BACK PAIN
     Dosage: 400 MG,
  3. PARACETAMOL 16028/0012 500 MG (PARACETAMOL) TABLET [Suspect]
     Indication: ARTHRALGIA
     Dosage: 1000 MG,
  4. PARACETAMOL 16028/0012 500 MG (PARACETAMOL) TABLET [Suspect]
     Indication: BACK PAIN
     Dosage: 1000 MG,
  5. MORPHINE [Suspect]
     Indication: ARTHRALGIA
     Dosage: 10 MG,
  6. MORPHINE [Suspect]
     Indication: BACK PAIN
     Dosage: 10 MG,
  7. TIGER BALM (CAMPHOR, EUCALYPTUS GLOBULUS OIL, MENTHOL, SYZYGIUM AROMAT [Suspect]
     Indication: ARTHRALGIA
  8. TIGER BALM (CAMPHOR, EUCALYPTUS GLOBULUS OIL, MENTHOL, SYZYGIUM AROMAT [Suspect]
     Indication: BACK PAIN
  9. TRAMADOL HCL [Suspect]
     Indication: ARTHRALGIA
     Dosage: 100 MG,
  10. TRAMADOL HCL [Suspect]
     Indication: BACK PAIN
     Dosage: 100 MG,
  11. DOTHIEPIN (DOSULEPIN HYDROCHLORIDE) [Concomitant]
  12. HYDROXYUREA [Concomitant]
  13. PENICILLIN V (PHENOXYMETHYLPENICILLIN POTASSIUM) [Concomitant]

REACTIONS (1)
  - DRUG INEFFECTIVE [None]
